FAERS Safety Report 11949940 (Version 1)
Quarter: 2016Q1

REPORT INFORMATION
  Report Type: Report from Study
  Country: US (occurrence: US)
  Receive Date: 20160125
  Receipt Date: 20160125
  Transmission Date: 20160526
  Serious: Yes (Other)
  Sender: FDA-Public Use
  Company Number: US-ABBVIE-15K-163-1333989-00

PATIENT
  Age: 29 Year
  Sex: Female
  Weight: 113.5 kg

DRUGS (1)
  1. HUMIRA [Suspect]
     Active Substance: ADALIMUMAB
     Indication: PSORIASIS
     Route: 065
     Dates: start: 20141213, end: 20141213

REACTIONS (4)
  - Vulval abscess [Recovered/Resolved]
  - Furuncle [Recovered/Resolved]
  - Furuncle [Recovering/Resolving]
  - Furuncle [Recovered/Resolved]

NARRATIVE: CASE EVENT DATE: 20141215
